FAERS Safety Report 9395357 (Version 1)
Quarter: 2013Q3

REPORT INFORMATION
  Report Type: Spontaneous
  Country: US (occurrence: US)
  Receive Date: 20130711
  Receipt Date: 20130711
  Transmission Date: 20140515
  Serious: Yes (Other)
  Sender: FDA-Public Use
  Company Number: US-ASTELLAS-2013US005352

PATIENT
  Sex: Male

DRUGS (3)
  1. MYRBETRIQ [Suspect]
     Indication: HYPERTONIC BLADDER
     Dosage: 25 MG, UID/QD
     Route: 048
     Dates: start: 20130319, end: 20130507
  2. MYRBETRIQ [Suspect]
     Dosage: 50 MG, UID/QD
     Route: 048
     Dates: start: 20130507, end: 20130607
  3. COZAAR [Concomitant]
     Indication: BLOOD PRESSURE
     Dosage: 100 MG, UID/QD
     Route: 065

REACTIONS (3)
  - Drug ineffective [Unknown]
  - Blood pressure systolic increased [Unknown]
  - Headache [Recovered/Resolved]
